FAERS Safety Report 8382542-X (Version None)
Quarter: 2012Q2

REPORT INFORMATION
  Report Type: 
  Country: None (occurrence: None)
  Receive Date: 20120524
  Receipt Date: 20120523
  Transmission Date: 20120825
  Serious: Yes (Death, Hospitalization, Other)
  Sender: FDA-Public Use
  Company Number: PHFR2011GB06293

PATIENT
  Sex: Female

DRUGS (2)
  1. SANDOSTATIN [Suspect]
     Indication: NEUROENDOCRINE TUMOUR
     Dosage: UNK
     Route: 058
  2. ANTIHYPERTENSIVES [Concomitant]
     Indication: ORTHOSTATIC HYPERTENSION
     Route: 065

REACTIONS (3)
  - SYNCOPE [None]
  - HYPOTENSION [None]
  - DEATH [None]
